FAERS Safety Report 10028249 (Version 1)
Quarter: 2014Q1

REPORT INFORMATION
  Report Type: Spontaneous
  Country: DK (occurrence: DK)
  Receive Date: 20140321
  Receipt Date: 20140321
  Transmission Date: 20141002
  Serious: Yes (Death)
  Sender: FDA-Public Use
  Company Number: DK-ACTAVIS-2014-05349

PATIENT
  Age: 34 Year
  Sex: Male
  Weight: 90 kg

DRUGS (15)
  1. OXYCODONE (UNKNOWN) [Suspect]
     Indication: PRODUCT USED FOR UNKNOWN INDICATION
     Dosage: 10 MG, PRN
     Route: 065
  2. PREGABALIN (UNKNOWN) [Suspect]
     Indication: PRODUCT USED FOR UNKNOWN INDICATION
     Dosage: 300 MG, DAILY
     Route: 065
  3. PANTOPRAZOLE (UNKNOWN) [Suspect]
     Indication: PRODUCT USED FOR UNKNOWN INDICATION
     Dosage: 20 MG, DAILY
     Route: 065
  4. QUETIAPINE (UNKNOWN) [Suspect]
     Indication: DEPRESSION
     Dosage: 100 MG, BID
     Route: 065
  5. SIMVASTATIN (UNKNOWN) [Suspect]
     Indication: PRODUCT USED FOR UNKNOWN INDICATION
     Dosage: 80 MG, DAILY
     Route: 065
  6. PHENOXYMETHYLPENICILLIN (UNKNOWN) [Suspect]
     Indication: PRODUCT USED FOR UNKNOWN INDICATION
     Dosage: 1000000 IU, TID
     Route: 065
  7. DIAZEPAM (UNKNOWN) [Suspect]
     Indication: PRODUCT USED FOR UNKNOWN INDICATION
     Dosage: 10 MG, PRN
     Route: 065
  8. NITRAZEPAM (UNKNOWN) [Suspect]
     Indication: PRODUCT USED FOR UNKNOWN INDICATION
     Dosage: 2.5 MG, PRN
     Route: 065
  9. HALOPERIDOL (UNKNOWN) [Suspect]
     Indication: PRODUCT USED FOR UNKNOWN INDICATION
     Dosage: 5 MG, PRN
     Route: 065
  10. ZOLPIDEM (UNKNOWN) [Suspect]
     Indication: PRODUCT USED FOR UNKNOWN INDICATION
     Dosage: 10 MG, DAILY
     Route: 065
  11. ETODOLAC (WATSON LABORATORIES) [Suspect]
     Indication: PRODUCT USED FOR UNKNOWN INDICATION
     Dosage: 300 MG, PRN
     Route: 065
  12. VENLAFAXINE BLUEFISH [Suspect]
     Indication: PRODUCT USED FOR UNKNOWN INDICATION
     Dosage: 150 MG, DAILY
     Route: 065
     Dates: start: 200511, end: 200707
  13. VENLAFAXINE BLUEFISH [Suspect]
     Dosage: 225 MG, DAILY
     Route: 065
     Dates: start: 200707, end: 200905
  14. VENLAFAXINE BLUEFISH [Suspect]
     Dosage: 150 MG, BID
     Route: 065
     Dates: start: 200905
  15. INSULIN DETEMIR [Suspect]
     Indication: TYPE 1 DIABETES MELLITUS
     Dosage: 10 U, DAILY
     Route: 065

REACTIONS (1)
  - Accidental poisoning [Fatal]
